FAERS Safety Report 23374970 (Version 2)
Quarter: 2024Q1

REPORT INFORMATION
  Report Type: Spontaneous
  Country: US (occurrence: US)
  Receive Date: 20240106
  Receipt Date: 20240131
  Transmission Date: 20240410
  Serious: No
  Sender: FDA-Public Use
  Company Number: US-HETERO-HET2023US03774

PATIENT
  Sex: Male
  Weight: 64.86 kg

DRUGS (1)
  1. SILDENAFIL [Suspect]
     Active Substance: SILDENAFIL
     Indication: Erectile dysfunction
     Dosage: 100 MILLIGRAM (1 TABLET AT AROUND 7:00 PM AND 2ND TABLET AROUND 11:00 PM)
     Route: 048
     Dates: start: 20231221, end: 20231222

REACTIONS (3)
  - Dizziness [Recovering/Resolving]
  - Extra dose administered [Unknown]
  - Drug ineffective [Unknown]
